FAERS Safety Report 6716180-9 (Version None)
Quarter: 2010Q2

REPORT INFORMATION
  Report Type: 
  Country: None (occurrence: None)
  Receive Date: 20100507
  Receipt Date: 20100427
  Transmission Date: 20101027
  Serious: Yes (Other)
  Sender: FDA-Public Use
  Company Number: US-PFIZER INC-2010053330

PATIENT
  Sex: Male
  Weight: 97 kg

DRUGS (13)
  1. CHANTIX [Suspect]
     Indication: SMOKING CESSATION THERAPY
     Dosage: 0.5 MG, 1X/DAY
     Route: 048
     Dates: start: 20090101, end: 20090101
  2. CARBAMAZEPINE [Concomitant]
     Indication: CONVULSION
     Dosage: 200 MG, 2X/DAY
     Route: 048
  3. METOPROLOL [Concomitant]
     Indication: HYPERTENSION
     Dosage: 25 MG
     Route: 048
  4. ACETYLSALICYLIC ACID [Concomitant]
     Dosage: 81 MG, 2X/DAY
     Route: 048
  5. ISOSORBIDE [Concomitant]
     Indication: CARDIAC DISORDER
     Dosage: 30 MG
     Route: 048
  6. PRAVASTATIN [Concomitant]
     Indication: BLOOD CHOLESTEROL
     Dosage: UNK
  7. LISINOPRIL AND HYDROCHLOROTHIAZIDE [Concomitant]
     Indication: HYPERTENSION
     Dosage: 20-12 MG
     Route: 048
  8. VESICARE [Concomitant]
     Indication: BLADDER DISORDER
     Dosage: 10 MG DAILY
     Route: 048
  9. AMITIZA [Concomitant]
     Indication: CONSTIPATION
     Dosage: 24 UG
     Route: 048
  10. CALCIUM [Concomitant]
     Dosage: UNK
  11. VITAMIN D [Concomitant]
     Dosage: UNK
  12. MECLIZINE [Concomitant]
     Indication: DIZZINESS
     Dosage: 25 MG
     Route: 048
  13. NITROGLYCERIN [Concomitant]
     Indication: CHEST PAIN
     Dosage: 0.4 MG, AS NEEDED

REACTIONS (1)
  - NERVOUSNESS [None]
